FAERS Safety Report 8838200 (Version 1)
Quarter: 2012Q4

REPORT INFORMATION
  Report Type: 
  Country: FR (occurrence: FR)
  Receive Date: 20121012
  Receipt Date: 20121012
  Transmission Date: 20130627
  Serious: Yes (Other)
  Sender: FDA-Public Use
  Company Number: FR-BRISTOL-MYERS SQUIBB COMPANY-17016072

PATIENT
  Age: 84 Year
  Sex: Male

DRUGS (6)
  1. HYDREA CAPS 500 MG [Suspect]
     Indication: MYELOPROLIFERATIVE DISORDER
     Dosage: 1DF = 1 Caps
     Route: 048
     Dates: start: 20120221
  2. VENOFER [Suspect]
     Dosage: 1DF =1 injection 
Strength:Venofer 100 mg/5ml
     Route: 042
     Dates: start: 201202, end: 20120410
  3. LOVENOX [Concomitant]
  4. LANTUS [Concomitant]
  5. TRIATEC [Concomitant]
  6. TARDYFERON [Concomitant]

REACTIONS (4)
  - Rash maculo-papular [Recovered/Resolved]
  - Pyrexia [Recovered/Resolved]
  - Malaise [Unknown]
  - Blood pressure decreased [Unknown]
